FAERS Safety Report 8397212-1 (Version None)
Quarter: 2012Q2

REPORT INFORMATION
  Report Type: 
  Country: None (occurrence: None)
  Receive Date: 20120530
  Receipt Date: 20120524
  Transmission Date: 20120825
  Serious: Yes (Hospitalization, Disabling)
  Sender: FDA-Public Use
  Company Number: US-MERCK-1203USA03311

PATIENT
  Age: 49 Year
  Sex: Female

DRUGS (6)
  1. FOSAMAX [Suspect]
     Route: 048
     Dates: start: 20080101, end: 20100101
  2. ALENDRONATE SODIUM [Suspect]
     Indication: OSTEOPENIA
     Route: 065
  3. FOSAMAX [Suspect]
     Indication: OSTEOPOROSIS
     Route: 048
     Dates: start: 20040101, end: 20080101
  4. FOSAMAX [Suspect]
     Indication: OSTEOPENIA
     Route: 048
     Dates: start: 20040101, end: 20080101
  5. FOSAMAX [Suspect]
     Route: 048
     Dates: start: 20080101, end: 20100101
  6. ALENDRONATE SODIUM [Suspect]
     Indication: OSTEOPOROSIS
     Route: 065

REACTIONS (26)
  - BONE DENSITY DECREASED [None]
  - JAW DISORDER [None]
  - ADVERSE EVENT [None]
  - BURSITIS [None]
  - GASTROOESOPHAGEAL REFLUX DISEASE [None]
  - FEMUR FRACTURE [None]
  - BONE DISORDER [None]
  - OSTEOPOROSIS [None]
  - PAIN [None]
  - MULTIPLE FRACTURES [None]
  - EMOTIONAL DISTRESS [None]
  - STRESS FRACTURE [None]
  - ROTATOR CUFF SYNDROME [None]
  - TOOTH DISORDER [None]
  - BLOOD CHOLESTEROL INCREASED [None]
  - SPINAL DISORDER [None]
  - EXOSTOSIS [None]
  - SINUS DISORDER [None]
  - CALCIUM DEFICIENCY [None]
  - CUBITAL TUNNEL SYNDROME [None]
  - ROAD TRAFFIC ACCIDENT [None]
  - POST-TRAUMATIC NECK SYNDROME [None]
  - ARTHROPATHY [None]
  - VITAMIN D DEFICIENCY [None]
  - TEMPOROMANDIBULAR JOINT SYNDROME [None]
  - ASTHMA [None]
